FAERS Safety Report 4938657-9 (Version None)
Quarter: 2006Q1

REPORT INFORMATION
  Report Type: 
  Country: None (occurrence: None)
  Receive Date: 20060127
  Receipt Date: 20051021
  Transmission Date: 20060701
  Serious: Yes (Other)
  Sender: FDA-Public Use
  Company Number: 2005146801

PATIENT
  Age: 70 Year
  Sex: Female
  Weight: 61.2356 kg

DRUGS (4)
  1. LYRICA [Suspect]
     Indication: DIABETIC NEUROPATHY
     Dosage: 150 MG (75 MG,2 IN 1 D),ORAL
     Route: 048
     Dates: start: 20051008, end: 20051020
  2. ACTONEL [Concomitant]
  3. LOTREL [Concomitant]
  4. CHOLESTYRAMINE RESIN (COLESTYRAMINE) [Concomitant]

REACTIONS (5)
  - FATIGUE [None]
  - HYPERTENSION [None]
  - INCREASED APPETITE [None]
  - PRURITUS [None]
  - RASH [None]
